FAERS Safety Report 5676573-8 (Version None)
Quarter: 2008Q1

REPORT INFORMATION
  Report Type: 
  Country: None (occurrence: None)
  Receive Date: 20080321
  Receipt Date: 20080321
  Transmission Date: 20080703
  Serious: Yes (Life-Threatening, Other)
  Sender: FDA-Public Use
  Company Number: None

PATIENT
  Sex: Female
  Weight: 54.4316 kg

DRUGS (2)
  1. METOPROLOL SUCCINATE EXTENDED RELEASE [Suspect]
     Indication: HEART RATE IRREGULAR
     Dosage: 25MG #30 FILLED TWICE 1 DAILY PO
     Route: 048
     Dates: start: 20070910, end: 20071020
  2. CLONAZEPAM [Concomitant]

REACTIONS (3)
  - ANXIETY [None]
  - MAJOR DEPRESSION [None]
  - SUICIDE ATTEMPT [None]
